FAERS Safety Report 9164059 (Version 4)
Quarter: 2014Q1

REPORT INFORMATION
  Report Type: Spontaneous
  Country: GB (occurrence: GB)
  Receive Date: 20130314
  Receipt Date: 20140211
  Transmission Date: 20141002
  Serious: Yes (Other)
  Sender: FDA-Public Use
  Company Number: GB-MYLANLABS-2013S1005069

PATIENT
  Age: 63 Year
  Sex: Male

DRUGS (1)
  1. TAMSULOSIN [Suspect]
     Indication: PROSTATIC DISORDER

REACTIONS (2)
  - Macular fibrosis [Unknown]
  - Visual acuity reduced [Not Recovered/Not Resolved]
